FAERS Safety Report 6107225-8 (Version None)
Quarter: 2009Q1

REPORT INFORMATION
  Report Type: 
  Country: None (occurrence: None)
  Receive Date: 20090305
  Receipt Date: 20090305
  Transmission Date: 20090719
  Serious: No
  Sender: FDA-Public Use
  Company Number: None

PATIENT
  Sex: Female

DRUGS (6)
  1. VENLAFAXINE XR 225MG. [Suspect]
     Indication: MAJOR DEPRESSION
     Dosage: 225MG 1 Q D PO
     Route: 048
     Dates: start: 20090106, end: 20090210
  2. PROVIGIL [Concomitant]
  3. NORTRYPTYLINE [Concomitant]
  4. LORAZEPAM [Concomitant]
  5. LEVOXYL [Concomitant]
  6. ACTONEL [Concomitant]

REACTIONS (4)
  - DEPRESSIVE SYMPTOM [None]
  - DISEASE RECURRENCE [None]
  - NAUSEA [None]
  - THERAPEUTIC RESPONSE UNEXPECTED WITH DRUG SUBSTITUTION [None]
